FAERS Safety Report 8699811 (Version 4)
Quarter: 2014Q1

REPORT INFORMATION
  Report Type: Spontaneous
  Country: US (occurrence: US)
  Receive Date: 20120802
  Receipt Date: 20140228
  Transmission Date: 20141002
  Serious: Yes (Hospitalization, Other)
  Sender: FDA-Public Use
  Company Number: US-JNJFOC-20120713962

PATIENT
  Age: 32 Year
  Sex: Male

DRUGS (1)
  1. RISPERDAL [Suspect]
     Indication: PSYCHIATRIC SYMPTOM
     Route: 048
     Dates: start: 20090616

REACTIONS (14)
  - Abnormal weight gain [Unknown]
  - Gynaecomastia [Recovering/Resolving]
  - Pituitary tumour benign [Unknown]
  - Aggression [Unknown]
  - Suicidal ideation [Unknown]
  - Homicidal ideation [Unknown]
  - Loss of consciousness [Unknown]
  - Blood prolactin increased [Unknown]
  - Galactorrhoea [Unknown]
  - Abdominal pain upper [Unknown]
  - Erectile dysfunction [Not Recovered/Not Resolved]
  - Depression [Unknown]
  - Painful erection [Not Recovered/Not Resolved]
  - Blood testosterone decreased [Unknown]
